FAERS Safety Report 20623901 (Version 1)
Quarter: 2022Q1

REPORT INFORMATION
  Report Type: Spontaneous
  Country: GB (occurrence: GB)
  Receive Date: 20220322
  Receipt Date: 20220322
  Transmission Date: 20220424
  Serious: Yes (Other)
  Sender: FDA-Public Use
  Company Number: GB-PFIZER INC-202200395127

PATIENT
  Age: 60 Year
  Sex: Female

DRUGS (2)
  1. IBRANCE [Suspect]
     Active Substance: PALBOCICLIB
     Indication: Breast cancer metastatic
     Dosage: 125 MG, CYCLIC (DAILY 3 WEEKS ON 1 WEEK OFF)
     Dates: start: 20210318
  2. FULVESTRANT [Suspect]
     Active Substance: FULVESTRANT
     Indication: Breast cancer metastatic
     Dosage: UNK
     Dates: start: 20210318

REACTIONS (5)
  - Thrombocytopenia [Unknown]
  - Adnexa uteri mass [Recovering/Resolving]
  - Small intestinal perforation [Recovering/Resolving]
  - Small intestinal obstruction [Recovering/Resolving]
  - Neoplasm progression [Unknown]
